FAERS Safety Report 8661256 (Version 2)
Quarter: 2012Q4

REPORT INFORMATION
  Report Type: 
  Country: RU (occurrence: RU)
  Receive Date: 20120712
  Receipt Date: 20121105
  Transmission Date: 20130627
  Serious: Yes (Other)
  Sender: FDA-Public Use
  Company Number: RU-009507513-1206USA00745

PATIENT
  Sex: Female

DRUGS (11)
  1. ISENTRESS [Suspect]
     Indication: PREGNANCY
     Dosage: 400 mg, bid, per OS
     Route: 048
     Dates: start: 20100830
  2. ISENTRESS [Suspect]
     Indication: HIV INFECTION
  3. COMBIVIR [Concomitant]
     Indication: HIV INFECTION
     Dosage: 1 DF, bid
     Route: 048
     Dates: start: 20090917
  4. KALETRA [Concomitant]
     Indication: HIV INFECTION
     Dosage: 2 DF, bid
     Route: 048
     Dates: start: 20090917
  5. MK-9039 [Concomitant]
     Indication: PREGNANCY
     Dosage: 1 DF, qid
     Route: 048
     Dates: start: 20120306, end: 20120316
  6. MAGNESIUM SULFATE [Concomitant]
     Indication: ABORTION THREATENED
     Dosage: UNK drop by drop
     Route: 042
     Dates: start: 20120306, end: 20120306
  7. PAPAVERINE HYDROCHLORIDE [Concomitant]
     Indication: ABORTION THREATENED
     Dosage: 2 ml, UNK
     Route: 030
     Dates: start: 20120306, end: 20120306
  8. VITAMIN E ACETATE [Concomitant]
     Indication: ABORTION THREATENED
     Dosage: UNK, l drop three times per day,
     Route: 048
     Dates: start: 20120306, end: 20120316
  9. VALERIAN [Concomitant]
     Indication: PREGNANCY
     Dosage: 2 DF, tid
     Route: 048
     Dates: start: 20120306, end: 20120316
  10. MAGNE B6 SOLUTION [Concomitant]
     Indication: ABORTION THREATENED
     Dosage: 1 DF, tid
     Dates: start: 20120306, end: 20120406
  11. DICYNONE [Concomitant]
     Indication: ABORTION THREATENED
     Dosage: UNK, bid, 12,5% 2ml
     Route: 030
     Dates: start: 20120306, end: 20120316

REACTIONS (6)
  - Abortion threatened [Unknown]
  - Exposure during pregnancy [Recovered/Resolved]
  - Premature separation of placenta [Unknown]
  - Pregnancy [None]
  - Maternal exposure during pregnancy [None]
  - Caesarean section [None]
